FAERS Safety Report 12599855 (Version 1)
Quarter: 2016Q3

REPORT INFORMATION
  Report Type: Spontaneous
  Country: FR (occurrence: FR)
  Receive Date: 20160727
  Receipt Date: 20160727
  Transmission Date: 20161109
  Serious: Yes (Disabling)
  Sender: FDA-Public Use
  Company Number: FR-PFIZER INC-3009318

PATIENT
  Age: 66 Year
  Sex: Female

DRUGS (6)
  1. RALOXIFENE HYDROCHLORIDE. [Concomitant]
     Active Substance: RALOXIFENE HYDROCHLORIDE
  2. ALUMINUM PHOSPHATE [Concomitant]
     Active Substance: ALUMINUM PHOSPHATE
  3. CALCIUM CARBONATE. [Concomitant]
     Active Substance: CALCIUM CARBONATE
  4. METHOTREXATE SODIUM. [Suspect]
     Active Substance: METHOTREXATE SODIUM
     Indication: RHEUMATOID ARTHRITIS
     Dosage: 2.5 UNK, FREQ:3 WEEK, INTERVAL: 1
  5. PANTOPRAZOL [Concomitant]
     Active Substance: PANTOPRAZOLE SODIUM
  6. FOLIC ACID. [Concomitant]
     Active Substance: FOLIC ACID

REACTIONS (6)
  - Product quality issue [Unknown]
  - Drug dispensing error [Unknown]
  - Expired product administered [Unknown]
  - Activities of daily living impaired [Unknown]
  - Drug ineffective [Unknown]
  - Arthralgia [Unknown]
